FAERS Safety Report 9509092 (Version 1)
Quarter: 2013Q3

REPORT INFORMATION
  Report Type: Spontaneous
  Country: US (occurrence: US)
  Receive Date: 20130909
  Receipt Date: 20130909
  Transmission Date: 20140515
  Serious: No
  Sender: FDA-Public Use
  Company Number: US-BRISTOL-MYERS SQUIBB COMPANY-19043645

PATIENT
  Age: 50 Year
  Sex: Female
  Weight: 90.7 kg

DRUGS (5)
  1. ABILIFY [Suspect]
     Indication: BIPOLAR DISORDER
  2. CELEXA [Concomitant]
  3. DEPAKOTE [Concomitant]
  4. AMBIEN [Concomitant]
     Dosage: 1 DF = 0.5 NOS.
  5. COGENTIN [Concomitant]

REACTIONS (1)
  - Restless legs syndrome [Not Recovered/Not Resolved]
